FAERS Safety Report 6041529-2 (Version None)
Quarter: 2009Q1

REPORT INFORMATION
  Report Type: 
  Country: None (occurrence: None)
  Receive Date: 20090116
  Receipt Date: 20090114
  Transmission Date: 20090719
  Serious: Yes (Hospitalization)
  Sender: FDA-Public Use
  Company Number: A0701536A

PATIENT
  Age: 73 Year
  Sex: Female
  Weight: 78.2 kg

DRUGS (3)
  1. AVANDIA [Suspect]
     Indication: TYPE 2 DIABETES MELLITUS
     Dosage: 8MG PER DAY
     Route: 048
     Dates: start: 20010124, end: 20051209
  2. GLUCOPHAGE [Concomitant]
     Dates: start: 20010111, end: 20010315
  3. PRECOSE [Concomitant]
     Dates: start: 20041203, end: 20060214

REACTIONS (22)
  - ARTHRALGIA [None]
  - BREAST ABSCESS [None]
  - CAROTID ARTERY STENOSIS [None]
  - CHEST PAIN [None]
  - CORONARY ARTERY OCCLUSION [None]
  - COSTOCHONDRITIS [None]
  - ELECTROCARDIOGRAM REPOLARISATION ABNORMALITY [None]
  - FALL [None]
  - FEMORAL NECK FRACTURE [None]
  - HYPERTENSION [None]
  - INJURY [None]
  - MITRAL VALVE INCOMPETENCE [None]
  - MYOCARDIAL INFARCTION [None]
  - NEPHROPATHY TOXIC [None]
  - PAIN [None]
  - PULMONARY OEDEMA [None]
  - RENAL FAILURE [None]
  - RIGHT VENTRICULAR SYSTOLIC PRESSURE INCREASED [None]
  - SINUS TACHYCARDIA [None]
  - STAPHYLOCOCCAL INFECTION [None]
  - TRANSIENT ISCHAEMIC ATTACK [None]
  - TRICUSPID VALVE INCOMPETENCE [None]
